FAERS Safety Report 24122320 (Version 1)
Quarter: 2024Q3

REPORT INFORMATION
  Report Type: Spontaneous
  Country: CA (occurrence: CA)
  Receive Date: 20240722
  Receipt Date: 20240722
  Transmission Date: 20241016
  Serious: Yes (Hospitalization)
  Sender: ROCHE
  Company Number: CA-ROCHE-10000031440

PATIENT
  Age: 85 Year
  Sex: Male

DRUGS (13)
  1. ACTEMRA ACTPEN [Suspect]
     Active Substance: TOCILIZUMAB
     Indication: Rheumatoid arthritis
     Route: 058
     Dates: start: 2022
  2. AZOPT [Concomitant]
     Active Substance: BRINZOLAMIDE
  3. COMBIGAN [Concomitant]
     Active Substance: BRIMONIDINE TARTRATE\TIMOLOL MALEATE
  4. FOLIC ACID [Concomitant]
     Active Substance: FOLIC ACID
  5. LUMIGAN [Concomitant]
     Active Substance: BIMATOPROST
  6. METHOTREXATE [Concomitant]
     Active Substance: METHOTREXATE
     Indication: Arthritis
  7. METOPROLOL [Concomitant]
     Active Substance: METOPROLOL
     Indication: Atrial flutter
  8. PERINDOPRIL [Concomitant]
     Active Substance: PERINDOPRIL
  9. PREDNISOLONE [Concomitant]
     Active Substance: PREDNISOLONE
  10. RABEPRAZOLE [Concomitant]
     Active Substance: RABEPRAZOLE
  11. RISEDRONATE SODIUM [Concomitant]
     Active Substance: RISEDRONATE SODIUM
  12. SYNTHROID [Concomitant]
     Active Substance: LEVOTHYROXINE SODIUM
  13. XARELTO [Concomitant]
     Active Substance: RIVAROXABAN
     Indication: Anticoagulant therapy

REACTIONS (2)
  - Atrial flutter [Unknown]
  - Hip fracture [Unknown]

NARRATIVE: CASE EVENT DATE: 20220301
